FAERS Safety Report 7176913-7 (Version None)
Quarter: 2010Q4

REPORT INFORMATION
  Report Type: 
  Country: None (occurrence: None)
  Receive Date: 20101207
  Receipt Date: 20101118
  Transmission Date: 20110411
  Serious: Yes (Other)
  Sender: FDA-Public Use
  Company Number: 20109725

PATIENT
  Age: 17 Year
  Sex: Male

DRUGS (1)
  1. LIORESAL [Suspect]
     Indication: MUSCLE SPASTICITY
     Dosage: 91.3 MCG, DAILY, INTRATHECAL
     Route: 037

REACTIONS (7)
  - DECUBITUS ULCER [None]
  - DEVICE CONNECTION ISSUE [None]
  - IMPLANT SITE DISCHARGE [None]
  - IMPLANT SITE EROSION [None]
  - IMPLANT SITE INFECTION [None]
  - SCOLIOSIS [None]
  - WOUND INFECTION STAPHYLOCOCCAL [None]
